FAERS Safety Report 4959424-6 (Version None)
Quarter: 2006Q1

REPORT INFORMATION
  Report Type: 
  Country: None (occurrence: None)
  Receive Date: 20060331
  Receipt Date: 20050718
  Transmission Date: 20060701
  Serious: Yes (Hospitalization, Other)
  Sender: FDA-Public Use
  Company Number: US-MERCK-0507USA02844

PATIENT
  Age: 64 Year
  Sex: Male
  Weight: 100 kg

DRUGS (1)
  1. VIOXX [Suspect]
     Indication: ARTHRITIS
     Route: 048
     Dates: start: 19991201, end: 20010601

REACTIONS (35)
  - ACUTE MYOCARDIAL INFARCTION [None]
  - ADRENAL DISORDER [None]
  - BENIGN PROSTATIC HYPERPLASIA [None]
  - BLADDER HYPERTROPHY [None]
  - BLINDNESS TRANSIENT [None]
  - CARDIAC ANEURYSM [None]
  - CEREBRAL HAEMATOMA [None]
  - CEREBRAL HAEMORRHAGE [None]
  - CHEST PAIN [None]
  - CONFUSIONAL STATE [None]
  - CORONARY ARTERY DISEASE [None]
  - CORONARY ARTERY OCCLUSION [None]
  - DISORIENTATION [None]
  - DIVERTICULUM INTESTINAL [None]
  - ENCEPHALOMALACIA [None]
  - GROIN PAIN [None]
  - HEMIANOPIA HOMONYMOUS [None]
  - HEMIPARESIS [None]
  - HEPATIC MASS [None]
  - HEPATIC STEATOSIS [None]
  - HIATUS HERNIA [None]
  - HYPERREFLEXIA [None]
  - HYPOVOLAEMIA [None]
  - IMPINGEMENT SYNDROME [None]
  - LUNG INFILTRATION [None]
  - PLEURAL EFFUSION [None]
  - PLEURAL FIBROSIS [None]
  - PULMONARY FIBROSIS [None]
  - RENAL ARTERY STENOSIS [None]
  - RENAL CYST [None]
  - RESTLESSNESS [None]
  - ROTATOR CUFF SYNDROME [None]
  - SPINAL OSTEOARTHRITIS [None]
  - TRANSIENT ISCHAEMIC ATTACK [None]
  - VASCULAR CALCIFICATION [None]
